FAERS Safety Report 10595117 (Version 1)
Quarter: 2014Q4

REPORT INFORMATION
  Report Type: Spontaneous
  Country: US (occurrence: None)
  Receive Date: 20141119
  Receipt Date: 20141119
  Transmission Date: 20150529
  Serious: Yes (Other)
  Sender: FDA-Public Use
  Company Number: None

PATIENT
  Age: 53 Year
  Sex: Male

DRUGS (2)
  1. RIBASPHERE [Suspect]
     Active Substance: RIBAVIRIN
     Indication: HEPATITIS
     Dosage: 1 CAPSULE, BID, ORAL
     Route: 048
     Dates: start: 20141028
  2. SOVALDI [Suspect]
     Active Substance: SOFOSBUVIR
     Indication: HEPATITIS
     Dosage: 1 TABLET, QD, ORAL
     Route: 048
     Dates: start: 20141028

REACTIONS (2)
  - Rash pruritic [None]
  - Urticaria [None]
